FAERS Safety Report 4850283-9 (Version None)
Quarter: 2005Q4

REPORT INFORMATION
  Report Type: 
  Country: None (occurrence: None)
  Receive Date: 20051123
  Receipt Date: 20050921
  Transmission Date: 20060501
  Serious: No
  Sender: FDA-Public Use
  Company Number: TPA2005A01101

PATIENT
  Age: 66 Year
  Sex: Female
  Weight: 68.9467 kg

DRUGS (4)
  1. ROZEREM [Suspect]
     Indication: INSOMNIA
     Dosage: 8 MG, QHS, PER ORAL
     Route: 048
     Dates: start: 20050911
  2. SYNTHROID [Concomitant]
  3. TOPROL-XL [Concomitant]
  4. UNKNOWN CHOLESTEROL MEDICATION (CHOLESTEROL- AND TRIGLYCERIDE REDUCERS [Concomitant]

REACTIONS (1)
  - DRUG INEFFECTIVE [None]
